FAERS Safety Report 23287996 (Version 1)
Quarter: 2023Q4

REPORT INFORMATION
  Report Type: Spontaneous
  Country: US (occurrence: US)
  Receive Date: 20231212
  Receipt Date: 20231212
  Transmission Date: 20240109
  Serious: Yes (Other)
  Sender: FDA-Public Use
  Company Number: US-PFIZER INC-PV202300142038

PATIENT
  Sex: Male

DRUGS (2)
  1. KEYTRUDA [Suspect]
     Active Substance: PEMBROLIZUMAB
     Indication: Neoplasm malignant
     Dosage: UNK
     Dates: end: 20231101
  2. INLYTA [Suspect]
     Active Substance: AXITINIB
     Indication: Neoplasm malignant
     Dosage: UNK
     Dates: end: 20231101

REACTIONS (3)
  - Malignant neoplasm progression [Unknown]
  - Renal impairment [Recovering/Resolving]
  - Glomerular filtration rate increased [Unknown]

NARRATIVE: CASE EVENT DATE: 20230101
